FAERS Safety Report 11579823 (Version 1)
Quarter: 2015Q3

REPORT INFORMATION
  Report Type: Spontaneous
  Country: US (occurrence: US)
  Receive Date: 20150916
  Receipt Date: 20150916
  Transmission Date: 20151125
  Serious: No
  Sender: FDA-Public Use
  Company Number: US-ELI_LILLY_AND_COMPANY-US200805002179

PATIENT
  Age: 77 Year
  Sex: Female

DRUGS (3)
  1. FORTEO [Suspect]
     Active Substance: TERIPARATIDE
     Indication: OSTEOPOROSIS
     Dates: start: 20080421
  2. COUMADIN [Concomitant]
     Active Substance: WARFARIN SODIUM
     Dates: end: 20080510
  3. DOXYCYCLIN /00055701/ [Concomitant]
     Dosage: 100 MG, 2/D
     Dates: start: 20070215

REACTIONS (3)
  - Mouth haemorrhage [Recovering/Resolving]
  - Swelling [Not Recovered/Not Resolved]
  - Erythema [Not Recovered/Not Resolved]

NARRATIVE: CASE EVENT DATE: 20080505
